FAERS Safety Report 9383748 (Version 1)
Quarter: 2013Q3

REPORT INFORMATION
  Report Type: Spontaneous
  Country: US (occurrence: US)
  Receive Date: 20130704
  Receipt Date: 20130704
  Transmission Date: 20140515
  Serious: No
  Sender: FDA-Public Use
  Company Number: US-PFIZER INC-2013195355

PATIENT
  Age: 61 Year
  Sex: Female

DRUGS (5)
  1. ZITHROMAX [Suspect]
     Dosage: UNK
  2. BUDESONIDE [Suspect]
     Dosage: UNK
  3. BACTRIM [Suspect]
     Dosage: UNK
  4. FLEXERIL [Suspect]
     Dosage: UNK
  5. ARFORMOTEROL TARTRATE [Suspect]
     Dosage: UNK

REACTIONS (1)
  - Drug hypersensitivity [Unknown]
